FAERS Safety Report 9389074 (Version 2)
Quarter: 2013Q4

REPORT INFORMATION
  Report Type: Spontaneous
  Country: US (occurrence: US)
  Receive Date: 20130708
  Receipt Date: 20131112
  Transmission Date: 20140711
  Serious: Yes (Death)
  Sender: FDA-Public Use
  Company Number: US-RB-055685-13

PATIENT
  Age: 31 Year
  Sex: Male

DRUGS (2)
  1. SUBOXONE FILM [Suspect]
     Indication: PRODUCT USED FOR UNKNOWN INDICATION
     Dosage: SUBOXONE FILM
     Route: 065
  2. SUBOXONE FILM [Suspect]
     Dosage: SUBOXONE FILM
     Route: 065

REACTIONS (1)
  - Death [Fatal]
